FAERS Safety Report 6895537-X (Version None)
Quarter: 2010Q3

REPORT INFORMATION
  Report Type: 
  Country: None (occurrence: None)
  Receive Date: 20100802
  Receipt Date: 20100727
  Transmission Date: 20110219
  Serious: Yes (Life-Threatening)
  Sender: FDA-Public Use
  Company Number: PHHY2010US49039

PATIENT
  Sex: Female

DRUGS (1)
  1. FEMARA [Suspect]
     Indication: BREAST CANCER
     Dosage: 2.5 MG,DAILY
     Route: 048
     Dates: start: 20100528, end: 20100627

REACTIONS (2)
  - DEPRESSION [None]
  - SUICIDE ATTEMPT [None]
